FAERS Safety Report 4327786-9 (Version None)
Quarter: 2004Q1

REPORT INFORMATION
  Report Type: 
  Country: None (occurrence: None)
  Receive Date: 20040325
  Receipt Date: 20040315
  Transmission Date: 20041129
  Serious: Yes (Death, Life-Threatening)
  Sender: FDA-Public Use
  Company Number: FR-JNJFOC-20040204295

PATIENT
  Age: 60 Year
  Sex: Male
  Weight: 70 kg

DRUGS (7)
  1. REMICADE [Suspect]
     Indication: RHEUMATOID ARTHRITIS
     Dosage: 3 MG/KG, INTRAVENOUS
     Route: 042
     Dates: start: 20021120, end: 20031105
  2. AMARYL [Concomitant]
  3. PREDNISONE TAB [Concomitant]
  4. FOLIC ACID [Concomitant]
  5. METHOTREXATE [Concomitant]
  6. GLUCOPHAGE [Concomitant]
  7. HYZAAR [Concomitant]

REACTIONS (3)
  - NOSOCOMIAL INFECTION [None]
  - OBLITERATIVE BRONCHIOLITIS [None]
  - PULMONARY FIBROSIS [None]
